FAERS Safety Report 21392531 (Version 4)
Quarter: 2022Q4

REPORT INFORMATION
  Report Type: Report from Study
  Country: US (occurrence: US)
  Receive Date: 20220929
  Receipt Date: 20221223
  Transmission Date: 20230113
  Serious: Yes (Hospitalization)
  Sender: FDA-Public Use
  Company Number: US-ABBVIE-22K-163-4535597-00

PATIENT
  Sex: Female

DRUGS (2)
  1. VENCLEXTA [Suspect]
     Active Substance: VENETOCLAX
     Indication: Acute myeloid leukaemia
     Dosage: FREQUENCY TEXT: 1TABLET DAILY 1-14 OUT OF 28 DAYS CHEMOC?FORM STRENGTH: 100 MILLIGRAM
     Route: 048
  2. VENCLEXTA [Suspect]
     Active Substance: VENETOCLAX
     Indication: Acute myeloid leukaemia
     Dosage: FREQUENCY TEXT: 1TAB DAILY 1-21 OUT OF 28DAYS CHEMOCYCLE?FORM STRENGTH: 100 MILLIGRAM
     Route: 048

REACTIONS (3)
  - Chemotherapy [Unknown]
  - Hypersensitivity [Unknown]
  - Off label use [Unknown]
